FAERS Safety Report 23531225 (Version 1)
Quarter: 2024Q1

REPORT INFORMATION
  Report Type: Spontaneous
  Country: US (occurrence: None)
  Receive Date: 20240215
  Receipt Date: 20240215
  Transmission Date: 20240410
  Serious: Yes (Hospitalization)
  Sender: FDA-Public Use
  Company Number: None

PATIENT
  Sex: Male

DRUGS (4)
  1. AUSTEDO [Suspect]
     Active Substance: DEUTETRABENAZINE
     Indication: Dyskinesia
     Dosage: FREQUENCY : TWICE A DAY;?
     Route: 048
     Dates: start: 20220106
  2. AUSTEDO [Suspect]
     Active Substance: DEUTETRABENAZINE
     Indication: Adverse drug reaction
  3. AUSTEDO [Suspect]
     Active Substance: DEUTETRABENAZINE
     Indication: Dyskinesia
     Dosage: FREQUENCY : TWICE A DAY;?
     Route: 048
     Dates: start: 20220106
  4. AUSTEDO [Suspect]
     Active Substance: DEUTETRABENAZINE
     Indication: Adverse drug reaction

REACTIONS (2)
  - Hospitalisation [None]
  - Emergency care [None]
